FAERS Safety Report 24408342 (Version 1)
Quarter: 2024Q4

REPORT INFORMATION
  Report Type: Spontaneous
  Country: US (occurrence: US)
  Receive Date: 20241007
  Receipt Date: 20241007
  Transmission Date: 20250115
  Serious: Yes (Congenital Anomaly, Other)
  Sender: VIIV
  Company Number: US-ViiV Healthcare Limited-US2024GSK119697

PATIENT

DRUGS (4)
  1. DOLUTEGRAVIR [Suspect]
     Active Substance: DOLUTEGRAVIR
     Indication: HIV infection
     Dosage: UNK
     Route: 064
  2. PENICILLIN G BENZATHINE [Suspect]
     Active Substance: PENICILLIN G BENZATHINE
     Indication: Syphilis
     Dosage: UNK
     Route: 064
  3. TENOFOVIR ALAFENAMIDE [Suspect]
     Active Substance: TENOFOVIR ALAFENAMIDE
     Indication: HIV infection
     Dosage: UNK
     Route: 064
  4. EMTRICITABINE [Suspect]
     Active Substance: EMTRICITABINE
     Indication: HIV infection
     Dosage: UNK
     Route: 064

REACTIONS (15)
  - Congenital syphilis [Unknown]
  - Central nervous system lesion [Unknown]
  - Hepatosplenomegaly neonatal [Unknown]
  - Petechiae [Unknown]
  - Skin exfoliation [Unknown]
  - Thrombocytopenia neonatal [Unknown]
  - Intracranial haemorrhage neonatal [Unknown]
  - HIV infection [Unknown]
  - Viral mutation identified [Unknown]
  - Pathogen resistance [Unknown]
  - Human immunodeficiency virus transmission [Unknown]
  - Illness [Unknown]
  - Premature baby [Unknown]
  - Therapeutic product effect incomplete [Unknown]
  - Foetal exposure during pregnancy [Unknown]
